FAERS Safety Report 5115286-8 (Version None)
Quarter: 2006Q3

REPORT INFORMATION
  Report Type: 
  Country: None (occurrence: None)
  Receive Date: 20060926
  Receipt Date: 20060925
  Transmission Date: 20061208
  Serious: Yes (Hospitalization)
  Sender: FDA-Public Use
  Company Number: FR-GLAXOSMITHKLINE-B0439328A

PATIENT
  Age: 74 Year
  Sex: Male

DRUGS (7)
  1. AUGMENTIN [Suspect]
     Indication: URINARY TRACT INFECTION
     Dosage: 500MG THREE TIMES PER DAY
     Route: 048
     Dates: start: 20060710, end: 20060725
  2. CIFLOX [Concomitant]
     Dosage: 1G PER DAY
     Route: 048
     Dates: start: 20060731, end: 20060810
  3. CALTRATE VITAMINE D3 [Concomitant]
     Route: 065
  4. ACTONEL [Concomitant]
     Route: 065
  5. TRANXENE [Concomitant]
     Route: 065
  6. DAFALGAN [Concomitant]
     Route: 065
  7. GELOX [Concomitant]
     Route: 065

REACTIONS (5)
  - ALANINE AMINOTRANSFERASE INCREASED [None]
  - BLOOD PHOSPHORUS INCREASED [None]
  - GAMMA-GLUTAMYLTRANSFERASE INCREASED [None]
  - HEPATITIS CHOLESTATIC [None]
  - JAUNDICE [None]
